FAERS Safety Report 6143081-X (Version None)
Quarter: 2009Q2

REPORT INFORMATION
  Report Type: 
  Country: None (occurrence: None)
  Receive Date: 20090403
  Receipt Date: 20090323
  Transmission Date: 20091009
  Serious: Yes (Death, Hospitalization)
  Sender: FDA-Public Use
  Company Number: IT-PFIZER INC-2006107034

PATIENT

DRUGS (11)
  1. SUNITINIB MALATE [Suspect]
     Indication: METASTATIC RENAL CELL CARCINOMA
     Dosage: 50 MG, 1X/DAY
     Route: 048
     Dates: start: 20060810, end: 20060830
  2. MIDAZOLAM HYDROCHLORIDE [Suspect]
     Indication: MOOD ALTERED
     Route: 042
     Dates: start: 20060828, end: 20060830
  3. MIDAZOLAM HYDROCHLORIDE [Suspect]
     Indication: AGITATION
  4. NORVASC [Concomitant]
     Dates: start: 19940101
  5. LAMICTAL [Concomitant]
     Dates: start: 20040101
  6. CARDIRENE [Concomitant]
     Dates: start: 20040101, end: 20060803
  7. RYTMONORM [Concomitant]
     Dates: start: 20040101
  8. LANSOX [Concomitant]
     Dates: start: 20060620
  9. MEDROL [Concomitant]
     Dates: start: 20060620
  10. PROTIADENE [Concomitant]
     Route: 048
     Dates: start: 19940101
  11. NADROPARIN [Concomitant]
     Route: 058
     Dates: start: 20060803

REACTIONS (4)
  - CONFUSIONAL STATE [None]
  - DEATH [None]
  - HAEMATEMESIS [None]
  - MUCOSAL INFLAMMATION [None]
